FAERS Safety Report 9636635 (Version 2)
Quarter: 2014Q1

REPORT INFORMATION
  Report Type: Report from Study
  Country: DE (occurrence: DE)
  Receive Date: 20131021
  Receipt Date: 20140131
  Transmission Date: 20141002
  Serious: Yes (Hospitalization)
  Sender: FDA-Public Use
  Company Number: PHHO2013DE013237

PATIENT
  Sex: 0

DRUGS (7)
  1. TACROLIMUS [Suspect]
     Indication: LIVER TRANSPLANT
     Dosage: 10 MG, UNK
     Route: 048
     Dates: start: 20131001
  2. SPIRONOLACTON [Suspect]
     Indication: CARDIAC FAILURE CONGESTIVE
     Dosage: 100 MG, UNK
     Route: 048
     Dates: start: 20130225
  3. FUROSEMID [Suspect]
  4. HYDROCHLOROTHIAZIDE [Suspect]
  5. TOREM [Concomitant]
     Indication: CARDIAC FAILURE CONGESTIVE
     Dosage: 40 MG, UNK
     Route: 048
     Dates: start: 20130225
  6. CARVEDILOL [Concomitant]
     Indication: CARDIAC FAILURE CONGESTIVE
     Dosage: 12.5 MG, UNK
     Route: 048
     Dates: start: 20130225
  7. DEKRISTOL [Concomitant]
     Indication: PROPHYLAXIS
     Dosage: 2000 I.E
     Route: 048
     Dates: start: 20130225

REACTIONS (1)
  - Renal failure acute [Recovering/Resolving]
